FAERS Safety Report 4614177-6 (Version None)
Quarter: 2005Q1

REPORT INFORMATION
  Report Type: 
  Country: None (occurrence: None)
  Receive Date: 20050315
  Receipt Date: 20050304
  Transmission Date: 20050727
  Serious: Yes (Other)
  Sender: FDA-Public Use
  Company Number: 2005041458

PATIENT
  Age: 75 Year
  Sex: Male
  Weight: 67.1324 kg

DRUGS (12)
  1. LIPITOR [Suspect]
     Indication: BLOOD CHOLESTEROL INCREASED
     Dosage: 10 MG (10 MG, 1 IN 1 D)
  2. DONEPEZIL HCL [Suspect]
     Indication: DEMENTIA ALZHEIMER'S TYPE
     Dosage: 10 MG (10 MG, 1 IN 1 D)
  3. PROPACET 100 [Concomitant]
  4. ENALAPRIL MALEATE [Concomitant]
  5. POTASSIUM CHLORIDE [Concomitant]
  6. LABETALOL HCL [Concomitant]
  7. ASASANTIN (ACETYLSALICYLIC ACID, DIPYRIDAMOLE) [Concomitant]
  8. FUROSEMIDE (FURSOSEMIDE) [Concomitant]
  9. MIRTAZAPINE [Concomitant]
  10. OXYCOCET (OXYCODOE HYDROCHLORIDE, PARACETAMOL) [Concomitant]
  11. CLONIDINE HCL [Concomitant]
  12. ANTINEOPLASTIC AGENTS (ANTINEOPLASTIC AGENTS) [Concomitant]

REACTIONS (2)
  - BLOOD CHOLESTEROL INCREASED [None]
  - CEREBROVASCULAR ACCIDENT [None]
